FAERS Safety Report 13561286 (Version 1)
Quarter: 2017Q2

REPORT INFORMATION
  Report Type: Spontaneous
  Country: FR (occurrence: FR)
  Receive Date: 20170518
  Receipt Date: 20170518
  Transmission Date: 20170830
  Serious: Yes (Hospitalization, Other)
  Sender: FDA-Public Use
  Company Number: FR-SUN PHARMACEUTICAL INDUSTRIES LTD-2017RR-140330

PATIENT
  Age: 17 Year
  Sex: Female

DRUGS (2)
  1. LEPTICUR [Suspect]
     Active Substance: TROPATEPINE HYDROCHLORIDE
     Indication: SUICIDAL IDEATION
     Dosage: 300 MG, TOTAL
     Route: 065
  2. PARACETAMOL [Suspect]
     Active Substance: ACETAMINOPHEN
     Indication: SUICIDAL IDEATION
     Dosage: 8 G, TOTAL
     Route: 065

REACTIONS (6)
  - Mydriasis [Recovering/Resolving]
  - Tachycardia [Recovering/Resolving]
  - Agitation [Recovering/Resolving]
  - Hyperthermia [Recovering/Resolving]
  - Confusional state [Recovering/Resolving]
  - Hypertonia [Recovering/Resolving]
